FAERS Safety Report 10125523 (Version 2)
Quarter: 2014Q2

REPORT INFORMATION
  Report Type: Report from Study
  Country: FR (occurrence: FR)
  Receive Date: 20140425
  Receipt Date: 20140425
  Transmission Date: 20141212
  Serious: Yes (Hospitalization)
  Sender: FDA-Public Use
  Company Number: PHHO2009FR12952

PATIENT
  Age: 18 Year
  Sex: Male
  Weight: 129 kg

DRUGS (1)
  1. SOM230 [Suspect]
     Dates: start: 20090924, end: 20090924

REACTIONS (2)
  - Diabetes mellitus [Recovered/Resolved]
  - Hyperglycaemia [Recovered/Resolved]
